FAERS Safety Report 8546530-2 (Version None)
Quarter: 2012Q3

REPORT INFORMATION
  Report Type: 
  Country: None (occurrence: None)
  Receive Date: 20120727
  Receipt Date: 20120720
  Transmission Date: 20120928
  Serious: Yes (Hospitalization)
  Sender: FDA-Public Use
  Company Number: US-ASTRAZENECA-2012SE51191

PATIENT
  Age: 62 Year
  Sex: Female
  Weight: 63.5 kg

DRUGS (5)
  1. SEROQUEL [Suspect]
     Indication: RELAXATION THERAPY
     Route: 048
  2. BLOOD PRESSURE MEDICATION [Concomitant]
     Indication: HYPERTENSION
  3. METFORMIN HYDROCHLORIDE [Concomitant]
  4. OTHER MEDICATIONS [Concomitant]
  5. SEROQUEL [Suspect]
     Indication: SLEEP DISORDER
     Route: 048

REACTIONS (3)
  - OFF LABEL USE [None]
  - THERAPEUTIC RESPONSE UNEXPECTED [None]
  - ANKLE FRACTURE [None]
